FAERS Safety Report 14946120 (Version 1)
Quarter: 2018Q2

REPORT INFORMATION
  Report Type: Spontaneous
  Country: IL (occurrence: IL)
  Receive Date: 20180529
  Receipt Date: 20180529
  Transmission Date: 20180711
  Serious: Yes (Other)
  Sender: FDA-Public Use
  Company Number: IL-009507513-1805ISR011565

PATIENT

DRUGS (3)
  1. KEYTRUDA [Suspect]
     Active Substance: PEMBROLIZUMAB
  2. CARBOPLATIN. [Suspect]
     Active Substance: CARBOPLATIN
  3. ALIMTA [Suspect]
     Active Substance: PEMETREXED DISODIUM

REACTIONS (2)
  - Neutropenia [Unknown]
  - Off label use [Unknown]
